FAERS Safety Report 23125995 (Version 1)
Quarter: 2023Q4

REPORT INFORMATION
  Report Type: Spontaneous
  Country: US (occurrence: None)
  Receive Date: 20231030
  Receipt Date: 20231030
  Transmission Date: 20240110
  Serious: Yes (Hospitalization)
  Sender: FDA-Public Use
  Company Number: None

PATIENT
  Sex: Female

DRUGS (5)
  1. HUMIRA [Suspect]
     Active Substance: ADALIMUMAB
  2. ELDERBERRY LOZ ZINC [Concomitant]
  3. IRON TAB [Concomitant]
  4. VITAMIN C TAB [Concomitant]
  5. WEGOVY INJ [Concomitant]

REACTIONS (3)
  - Therapy change [None]
  - Therapy interrupted [None]
  - Crohn^s disease [None]
